FAERS Safety Report 19777710 (Version 1)
Quarter: 2021Q3

REPORT INFORMATION
  Report Type: Other
  Country: CA (occurrence: CA)
  Receive Date: 20210902
  Receipt Date: 20210902
  Transmission Date: 20211014
  Serious: Yes (Other)
  Sender: FDA-Public Use
  Company Number: CA-ACCORD-236676

PATIENT
  Age: 63 Year
  Sex: Male

DRUGS (3)
  1. PREDNISONE. [Suspect]
     Active Substance: PREDNISONE
     Indication: PEMPHIGUS
     Dosage: 1 EVERY 1 DAYS
     Route: 065
  2. METHOTREXATE. [Suspect]
     Active Substance: METHOTREXATE
     Indication: PEMPHIGUS
     Dosage: 1 EVERY 1 DAYS
     Route: 065
  3. RITUXIMAB. [Suspect]
     Active Substance: RITUXIMAB
     Indication: PEMPHIGUS
     Dosage: 1 EVERY 1 WEEKS
     Route: 065

REACTIONS (6)
  - Condition aggravated [Unknown]
  - Mouth ulceration [Unknown]
  - Ulcer [Unknown]
  - Off label use [Unknown]
  - Disease progression [Unknown]
  - Pemphigus [Unknown]
